FAERS Safety Report 8390153-5 (Version None)
Quarter: 2012Q2

REPORT INFORMATION
  Report Type: 
  Country: None (occurrence: None)
  Receive Date: 20120529
  Receipt Date: 20120525
  Transmission Date: 20120825
  Serious: Yes (Other)
  Sender: FDA-Public Use
  Company Number: US-PFIZER INC-2012127246

PATIENT
  Sex: Female
  Weight: 54.422 kg

DRUGS (2)
  1. CHANTIX [Suspect]
     Indication: SMOKING CESSATION THERAPY
     Dosage: 0.5 MG, UNK
     Dates: start: 20120501, end: 20120501
  2. CHANTIX [Suspect]
     Dosage: 1 MG, UNK
     Dates: start: 20120501, end: 20120525

REACTIONS (4)
  - PERSONALITY DISORDER [None]
  - MANIA [None]
  - ABNORMAL BEHAVIOUR [None]
  - AGGRESSION [None]
